FAERS Safety Report 12880593 (Version 1)
Quarter: 2016Q4

REPORT INFORMATION
  Report Type: Spontaneous
  Country: BR (occurrence: BR)
  Receive Date: 20161025
  Receipt Date: 20161025
  Transmission Date: 20170207
  Serious: Yes (Death, Hospitalization)
  Sender: FDA-Public Use
  Company Number: BR-DSJP-DSU-2016-135822

PATIENT

DRUGS (10)
  1. PROLOPA [Concomitant]
     Active Substance: BENSERAZIDE\LEVODOPA
     Indication: PARKINSON^S DISEASE
     Dosage: 4 TABLETS, QD
     Route: 048
     Dates: start: 2013, end: 2016
  2. VAST [Concomitant]
     Indication: BLOOD CHOLESTEROL ABNORMAL
     Dosage: 1 TABLET, QOD (EVEN DAYS)
     Route: 048
     Dates: start: 2015, end: 2016
  3. OLMETEC HCT 20/12.5 [Suspect]
     Active Substance: HYDROCHLOROTHIAZIDE\OLMESARTAN MEDOXOMIL
     Indication: HYPERTENSION
     Dosage: 20/12.5 MG, QD
     Route: 048
     Dates: start: 2013
  4. ADDERA D3 [Concomitant]
     Active Substance: CHOLECALCIFEROL
     Indication: VITAMIN D
     Dosage: 5 DROPS, QD (MORNING)
     Route: 048
     Dates: start: 2012
  5. PREVELIP [Concomitant]
     Indication: BLOOD CHOLESTEROL ABNORMAL
     Dosage: 1 TABLET, QD
     Route: 048
     Dates: start: 2014, end: 2016
  6. NEBILET [Concomitant]
     Active Substance: NEBIVOLOL
     Indication: ISCHAEMIA
     Dosage: 1 TABLET, QOD (EVEN DAYS)
     Route: 048
     Dates: start: 2013, end: 2016
  7. DONAREN [Concomitant]
     Active Substance: TRAZODONE HYDROCHLORIDE
     Indication: INSOMNIA
     Dosage: 1 TABLET, QD (NIGHT)
     Route: 048
     Dates: start: 2013, end: 2016
  8. PANTOPRAZOLE [Concomitant]
     Active Substance: PANTOPRAZOLE SODIUM
     Indication: PROPHYLAXIS AGAINST GASTROINTESTINAL ULCER
     Dosage: 1 TABLET, QD
     Route: 048
     Dates: start: 2013, end: 2016
  9. PREVELIP [Concomitant]
     Indication: ANTICOAGULANT THERAPY
  10. DONAREN [Concomitant]
     Active Substance: TRAZODONE HYDROCHLORIDE
     Indication: DEPRESSION

REACTIONS (1)
  - Sepsis [Fatal]

NARRATIVE: CASE EVENT DATE: 201610
